FAERS Safety Report 22375403 (Version 1)
Quarter: 2023Q2

REPORT INFORMATION
  Report Type: Spontaneous
  Country: US (occurrence: US)
  Receive Date: 20230527
  Receipt Date: 20230527
  Transmission Date: 20230722
  Serious: No
  Sender: FDA-Public Use
  Company Number: US-PERRIGO-22US011711

PATIENT
  Age: 42 Year
  Sex: Male
  Weight: 70.295 kg

DRUGS (2)
  1. MINOXIDIL [Suspect]
     Active Substance: MINOXIDIL
     Indication: Alopecia
     Dosage: HALF CAPFUL, BID
     Route: 061
     Dates: start: 202208, end: 202208
  2. FINASTERIDE [Concomitant]
     Active Substance: FINASTERIDE
     Indication: Hair growth rate abnormal
     Dosage: UNKNOWN, UNKNOWN
     Route: 065
     Dates: start: 202208

REACTIONS (1)
  - Application site pain [Recovered/Resolved]

NARRATIVE: CASE EVENT DATE: 20220801
